FAERS Safety Report 7122798-4 (Version None)
Quarter: 2010Q4

REPORT INFORMATION
  Report Type: 
  Country: None (occurrence: None)
  Receive Date: 20101124
  Receipt Date: 20101118
  Transmission Date: 20110411
  Serious: Yes (Other)
  Sender: FDA-Public Use
  Company Number: US-ABBOTT-10P-163-0686343-00

PATIENT
  Sex: Male
  Weight: 108.96 kg

DRUGS (5)
  1. MERIDIA [Suspect]
     Indication: WEIGHT DECREASED
  2. LISIONPRIL [Concomitant]
     Indication: PRODUCT USED FOR UNKNOWN INDICATION
  3. DILTIAZEM [Concomitant]
     Indication: PRODUCT USED FOR UNKNOWN INDICATION
  4. HYDROCHLOROTHIAZIDE [Concomitant]
     Indication: PRODUCT USED FOR UNKNOWN INDICATION
  5. LYRICA [Concomitant]
     Indication: PRODUCT USED FOR UNKNOWN INDICATION

REACTIONS (3)
  - BACK PAIN [None]
  - CARDIAC ARREST [None]
  - ELECTROCARDIOGRAM ABNORMAL [None]
